FAERS Safety Report 8990634 (Version 2)
Quarter: 2013Q1

REPORT INFORMATION
  Report Type: Report from Study
  Country: JP (occurrence: JP)
  Receive Date: 20121228
  Receipt Date: 20130219
  Transmission Date: 20140127
  Serious: Yes (Death)
  Sender: FDA-Public Use
  Company Number: JP-AMGEN-JPNCT2012083678

PATIENT
  Age: 88 Year
  Sex: Female
  Weight: 48 kg

DRUGS (11)
  1. DARBEPOETIN ALFA [Suspect]
     Indication: NEPHROGENIC ANAEMIA
     Dosage: 30 MUG, Q2WK
     Route: 058
     Dates: start: 20110623
  2. DARBEPOETIN ALFA [Suspect]
     Dosage: 60 MUG, Q2WK
     Route: 058
     Dates: start: 20110804, end: 20111109
  3. LASIX [Concomitant]
     Dosage: 20 MG, QD
     Route: 048
     Dates: start: 20110804
  4. ECARD [Concomitant]
     Dosage: UNK
     Route: 048
     Dates: start: 20110804
  5. FERROMIA [Concomitant]
     Dosage: 50 MG, QD
     Route: 048
     Dates: start: 20110804
  6. ARTIST [Concomitant]
     Dosage: 2.5 MG, QD
     Route: 048
     Dates: start: 20110804
  7. LOXONIN [Concomitant]
     Dosage: 60 MG, BID
     Route: 048
     Dates: start: 20111112
  8. TAGAMET [Concomitant]
     Dosage: 200 MG, BID
     Route: 048
     Dates: start: 20111112
  9. ADOFEED [Concomitant]
     Dosage: UNK UNK, BID
     Route: 061
     Dates: start: 20111112
  10. MAGMITT [Concomitant]
     Dosage: 500 MG, QD
     Route: 048
     Dates: start: 20111118
  11. LAXOBERON [Concomitant]
     Dosage: 10 GTT, QD
     Route: 048
     Dates: start: 20111118

REACTIONS (1)
  - Cardiac failure acute [Fatal]
